FAERS Safety Report 4376245-6 (Version None)
Quarter: 2004Q2

REPORT INFORMATION
  Report Type: 
  Country: None (occurrence: None)
  Receive Date: 20040611
  Receipt Date: 20040604
  Transmission Date: 20050107
  Serious: Yes (Life-Threatening, Hospitalization, Disabling, Other)
  Sender: FDA-Public Use
  Company Number: PL-MERCK-0406POL00004

PATIENT
  Age: 25 Year
  Sex: Male
  Weight: 71 kg

DRUGS (6)
  1. FLUTICASONE PROPIONATE [Concomitant]
     Indication: ASTHMA
     Route: 055
     Dates: start: 20030115, end: 20030607
  2. FORMOTEROL FUMARATE [Concomitant]
     Indication: ASTHMA
     Route: 055
     Dates: start: 20030115, end: 20030613
  3. LEVOTHYROXINE SODIUM [Concomitant]
     Indication: THYROIDECTOMY PARTIAL
     Route: 065
  4. SINGULAIR [Suspect]
     Indication: ASTHMA
     Route: 048
     Dates: start: 20000106, end: 20000301
  5. SINGULAIR [Suspect]
     Route: 048
     Dates: start: 20000601, end: 20000801
  6. SINGULAIR [Suspect]
     Route: 048
     Dates: start: 20030115, end: 20030301

REACTIONS (1)
  - ALLERGIC GRANULOMATOUS ANGIITIS [None]
